FAERS Safety Report 8181592-6 (Version None)
Quarter: 2012Q1

REPORT INFORMATION
  Report Type: 
  Country: None (occurrence: None)
  Receive Date: 20120302
  Receipt Date: 20120222
  Transmission Date: 20120608
  Serious: Yes (Hospitalization, Other)
  Sender: FDA-Public Use
  Company Number: DE-ELI_LILLY_AND_COMPANY-DE201202006563

PATIENT
  Age: 74 Year
  Sex: Female

DRUGS (6)
  1. DEKRISTOL [Concomitant]
  2. HUMIRA [Concomitant]
  3. IBUPROFEN TABLETS [Concomitant]
  4. PREDNISOLONE [Concomitant]
     Dosage: UNK
     Dates: start: 20060101
  5. CALCIUM [Concomitant]
  6. FORTEO [Suspect]
     Indication: OSTEOPOROSIS
     Dosage: UNK, QD
     Route: 058
     Dates: start: 20100521

REACTIONS (7)
  - FALL [None]
  - KNEE ARTHROPLASTY [None]
  - VASCULAR GRAFT [None]
  - BALANCE DISORDER [None]
  - HOSPITALISATION [None]
  - ASTHENIA [None]
  - BLOOD PRESSURE INCREASED [None]
